FAERS Safety Report 11649414 (Version 2)
Quarter: 2015Q4

REPORT INFORMATION
  Report Type: Spontaneous
  Country: NL (occurrence: NL)
  Receive Date: 20151021
  Receipt Date: 20151029
  Transmission Date: 20160304
  Serious: Yes (Hospitalization, Other)
  Sender: FDA-Public Use
  Company Number: NL-009507513-1510NLD009465

PATIENT
  Age: 16 Year
  Sex: Male

DRUGS (4)
  1. LIVOCAB [Concomitant]
     Dosage: UNK
  2. FLUTICASONE [Concomitant]
     Active Substance: FLUTICASONE\FLUTICASONE PROPIONATE
     Dosage: UNK
  3. CETIRIZINE HYDROCHLORIDE. [Concomitant]
     Active Substance: CETIRIZINE HYDROCHLORIDE
     Dosage: UNK
  4. GRAZAX [Suspect]
     Active Substance: PHLEUM PRATENSE POLLEN
     Indication: SEASONAL ALLERGY
     Dosage: 75000 STANDARDISED QUALITY TABLET (SQ-T)
     Route: 048
     Dates: start: 201504, end: 20150925

REACTIONS (11)
  - Dizziness [Unknown]
  - Pallor [Unknown]
  - Dyspnoea [Unknown]
  - Food allergy [Unknown]
  - Diarrhoea [Unknown]
  - Hypersensitivity [Unknown]
  - Rash [Unknown]
  - Peripheral swelling [Unknown]
  - Limb discomfort [Unknown]
  - Pharyngeal oedema [Unknown]
  - Nausea [Unknown]

NARRATIVE: CASE EVENT DATE: 2015
